FAERS Safety Report 9157360 (Version 1)
Quarter: 2013Q1

REPORT INFORMATION
  Report Type: Spontaneous
  Country: US (occurrence: None)
  Receive Date: 20130308
  Receipt Date: 20130308
  Transmission Date: 20140127
  Serious: No
  Sender: FDA-Public Use
  Company Number: None

PATIENT
  Sex: Female
  Weight: 136.08 kg

DRUGS (1)
  1. DICLOFENAC [Suspect]
     Indication: ARTHRITIS
     Dosage: I THINK IT WAS THE 1ST 2ND FEB I LAST TOOK PILL

REACTIONS (3)
  - Pain of skin [None]
  - Generalised oedema [None]
  - Pain [None]
